FAERS Safety Report 24224173 (Version 1)
Quarter: 2024Q3

REPORT INFORMATION
  Report Type: Spontaneous
  Country: US (occurrence: None)
  Receive Date: 20240818
  Receipt Date: 20240818
  Transmission Date: 20241016
  Serious: Yes (Hospitalization)
  Sender: Public
  Company Number: None

PATIENT
  Age: 67 Year
  Sex: Male
  Weight: 101.25 kg

DRUGS (2)
  1. LOSARTAN [Suspect]
     Active Substance: LOSARTAN\LOSARTAN POTASSIUM
     Indication: Hypertension
     Dates: start: 20231201, end: 20240811
  2. Lipitornone [Concomitant]

REACTIONS (8)
  - Dizziness [None]
  - Fatigue [None]
  - Fall [None]
  - Skin laceration [None]
  - Wound haemorrhage [None]
  - Eye injury [None]
  - Libido decreased [None]
  - Orgasm abnormal [None]

NARRATIVE: CASE EVENT DATE: 20240811
